FAERS Safety Report 14957857 (Version 1)
Quarter: 2018Q2

REPORT INFORMATION
  Report Type: Spontaneous
  Country: ZA (occurrence: ZA)
  Receive Date: 20180531
  Receipt Date: 20180531
  Transmission Date: 20180711
  Serious: Yes (Life-Threatening, Hospitalization, Other)
  Sender: FDA-Public Use
  Company Number: PHHY2018ZA008448

PATIENT
  Age: 35 Year
  Sex: Female
  Weight: 59 kg

DRUGS (16)
  1. ALUVIA [Concomitant]
     Active Substance: LOPINAVIR\RITONAVIR
     Indication: PRODUCT USED FOR UNKNOWN INDICATION
     Dosage: UNK
     Route: 065
  2. LINEZOLID. [Suspect]
     Active Substance: LINEZOLID
     Indication: TUBERCULOSIS
     Dosage: 300 MG, QD
     Route: 065
  3. ISONIAZID. [Suspect]
     Active Substance: ISONIAZID
     Indication: TUBERCULOSIS
     Dosage: 300 MG, QD
     Route: 065
     Dates: start: 20170814
  4. ABACAVIR. [Concomitant]
     Active Substance: ABACAVIR
     Indication: PRODUCT USED FOR UNKNOWN INDICATION
     Dosage: UNK
     Route: 065
  5. PYRAZINAMIDE SANDOZ [Suspect]
     Active Substance: PYRAZINAMIDE
     Indication: TUBERCULOSIS
     Dosage: 1750 MG, QD
     Route: 065
     Dates: start: 20150528, end: 201609
  6. RITONAVIR. [Concomitant]
     Active Substance: RITONAVIR
     Indication: PRODUCT USED FOR UNKNOWN INDICATION
     Dosage: UNK
     Route: 065
  7. FLUCONAZOLE. [Concomitant]
     Active Substance: FLUCONAZOLE
     Indication: PRODUCT USED FOR UNKNOWN INDICATION
     Dosage: UNK
     Route: 065
  8. EPILIM [Suspect]
     Active Substance: VALPROATE SODIUM
     Indication: TUBERCULOSIS
     Dosage: UNK
     Route: 065
     Dates: start: 20160418
  9. PYRIDOXINE [Concomitant]
     Active Substance: PYRIDOXINE
     Indication: PRODUCT USED FOR UNKNOWN INDICATION
     Dosage: UNK
     Route: 065
  10. DELAMANID [Suspect]
     Active Substance: DELAMANID
     Indication: TUBERCULOSIS
     Dosage: 100 MG, BID
     Route: 065
  11. CLOFAZIMINE [Suspect]
     Active Substance: CLOFAZIMINE
     Indication: TUBERCULOSIS
     Dosage: 100 MG, UNK
     Route: 065
     Dates: start: 20170814
  12. 4-AMINOSALICYLIC ACID [Suspect]
     Active Substance: AMINOSALICYLIC ACID
     Indication: TUBERCULOSIS
     Dosage: 8 G, QD
     Route: 065
     Dates: start: 20170814
  13. ATAZANAVIR. [Concomitant]
     Active Substance: ATAZANAVIR SULFATE
     Indication: PRODUCT USED FOR UNKNOWN INDICATION
     Dosage: UNK
     Route: 065
  14. BEDAQUILINE [Suspect]
     Active Substance: BEDAQUILINE
     Indication: TUBERCULOSIS
     Dosage: 200 MG, TIW
     Route: 048
  15. LAMIVUDINE. [Concomitant]
     Active Substance: LAMIVUDINE
     Indication: PRODUCT USED FOR UNKNOWN INDICATION
     Dosage: UNK
     Route: 065
  16. LEVOFLOXACIN. [Suspect]
     Active Substance: LEVOFLOXACIN
     Indication: TUBERCULOSIS
     Dosage: 1 G, QD
     Route: 065
     Dates: start: 20170814

REACTIONS (6)
  - Incorrect drug administration duration [Unknown]
  - Central nervous system lesion [Recovering/Resolving]
  - Toxoplasmosis [Unknown]
  - Hemiplegia [Recovering/Resolving]
  - Seizure [Unknown]
  - Facial paralysis [Unknown]

NARRATIVE: CASE EVENT DATE: 20160925
